FAERS Safety Report 12142541 (Version 4)
Quarter: 2016Q2

REPORT INFORMATION
  Report Type: Spontaneous
  Country: US (occurrence: US)
  Receive Date: 20160303
  Receipt Date: 20160502
  Transmission Date: 20160815
  Serious: Yes (Other)
  Sender: FDA-Public Use
  Company Number: US-GILEAD-2016-0201358

PATIENT
  Age: 67 Year
  Sex: Male
  Weight: 92.52 kg

DRUGS (14)
  1. HARVONI [Suspect]
     Active Substance: LEDIPASVIR\SOFOSBUVIR
     Indication: PRODUCT USED FOR UNKNOWN INDICATION
     Dosage: UNK
     Route: 048
     Dates: start: 201602
  2. ZOLPIDEM TARTRATE. [Concomitant]
     Active Substance: ZOLPIDEM TARTRATE
     Dosage: 10 MG, QHS
     Route: 048
     Dates: start: 20160309
  3. PLAQUENIL                          /00072602/ [Concomitant]
     Active Substance: HYDROXYCHLOROQUINE DIPHOSPHATE
     Dosage: 200 MG, BID
     Dates: start: 20160114
  4. PROPANOLOL HYDROCHLORIDE [Concomitant]
     Active Substance: PROPRANOLOL HYDROCHLORIDE
     Dosage: 40 MG, BID
     Route: 048
     Dates: start: 20151117
  5. RANITIDINE. [Concomitant]
     Active Substance: RANITIDINE
     Dosage: 150 MG, BID
  6. AMOXICILLIN. [Concomitant]
     Active Substance: AMOXICILLIN
     Dosage: 2000 MG, ONCE
     Dates: start: 20160218
  7. ROXICODONE [Concomitant]
     Active Substance: OXYCODONE HYDROCHLORIDE
     Dosage: 15 MG, TID
     Route: 048
     Dates: start: 20160309
  8. CLONAZEPAM. [Concomitant]
     Active Substance: CLONAZEPAM
     Dosage: 1 MG, BID
     Route: 048
     Dates: start: 20160309
  9. DULOXETINE HCL [Concomitant]
     Active Substance: DULOXETINE HYDROCHLORIDE
     Dosage: 60 MG, QD
     Dates: start: 20160111
  10. REGLAN [Concomitant]
     Active Substance: METOCLOPRAMIDE HYDROCHLORIDE
     Dosage: 10 MG, QD
     Dates: start: 20131120
  11. METHADONE [Concomitant]
     Active Substance: METHADONE HYDROCHLORIDE
     Dosage: 20 MG, BID
     Route: 048
     Dates: start: 20160309
  12. METFORMIN HCL [Concomitant]
     Active Substance: METFORMIN HYDROCHLORIDE
     Dosage: 500 MG, BID
     Dates: start: 20160223
  13. PROAIR HFA [Concomitant]
     Active Substance: ALBUTEROL SULFATE
     Dosage: UNK
     Route: 055
     Dates: start: 20131125
  14. ANDROGEL [Concomitant]
     Active Substance: TESTOSTERONE
     Dosage: 50 MG, QD

REACTIONS (7)
  - Arthritis [Recovered/Resolved]
  - Abdominal pain upper [Not Recovered/Not Resolved]
  - Decreased appetite [Not Recovered/Not Resolved]
  - Fatigue [Recovered/Resolved]
  - Nausea [Not Recovered/Not Resolved]
  - Impaired gastric emptying [Unknown]
  - Headache [Recovered/Resolved]

NARRATIVE: CASE EVENT DATE: 2016
